FAERS Safety Report 6772471-7 (Version None)
Quarter: 2010Q2

REPORT INFORMATION
  Report Type: 
  Country: None (occurrence: None)
  Receive Date: 20100616
  Receipt Date: 20090708
  Transmission Date: 20101027
  Serious: No
  Sender: FDA-Public Use
  Company Number: US-ASTRAZENECA-2009UW19027

PATIENT
  Age: 86 Year
  Sex: Female
  Weight: 60.3 kg

DRUGS (1)
  1. PULMICORT RESPULES [Suspect]
     Route: 055
     Dates: start: 20081215

REACTIONS (4)
  - FALL [None]
  - HIP FRACTURE [None]
  - LOOSE TOOTH [None]
  - TOOTH EXTRACTION [None]
